FAERS Safety Report 17123829 (Version 3)
Quarter: 2020Q1

REPORT INFORMATION
  Report Type: Report from Study
  Country: ES (occurrence: ES)
  Receive Date: 20191206
  Receipt Date: 20200114
  Transmission Date: 20200409
  Serious: Yes (Life-Threatening, Disabling, Other)
  Sender: FDA-Public Use
  Company Number: ES-PFIZER INC-2019525481

PATIENT
  Age: 66 Year
  Sex: Female
  Weight: 58 kg

DRUGS (9)
  1. DOXORUBICIN HCL [Suspect]
     Active Substance: DOXORUBICIN HYDROCHLORIDE
     Dosage: 38 MG, CYCLIC (CYCLE 2)
     Route: 042
     Dates: start: 20180424, end: 20180424
  2. TRABECTEDIN [Suspect]
     Active Substance: TRABECTEDIN
     Dosage: 1.7 MG, CYCLIC(CYCLE 1 PRIOR TO BASELINE VISIT)
     Route: 042
     Dates: start: 20180326
  3. DEXAMETHASONE. [Concomitant]
     Active Substance: DEXAMETHASONE
     Indication: PREMEDICATION
     Dosage: 20 MG, UNK
     Route: 065
  4. TRABECTEDIN [Suspect]
     Active Substance: TRABECTEDIN
     Dosage: 1.1 MG, CYCLIC(CYCLE 3 TO 5)
     Route: 042
     Dates: start: 20180521, end: 20180716
  5. TRABECTEDIN [Suspect]
     Active Substance: TRABECTEDIN
     Dosage: 1.4 MG, CYCLIC (CYCLE 2)
     Route: 042
     Dates: start: 20180424, end: 20180424
  6. DOXORUBICIN HCL [Suspect]
     Active Substance: DOXORUBICIN HYDROCHLORIDE
     Dosage: 46 MG, CYCLIC(CYCLE 1 PRIOR TO BASELINE VISIT)
     Route: 042
     Dates: start: 20180326
  7. TRABECTEDIN [Suspect]
     Active Substance: TRABECTEDIN
     Indication: OVARIAN CANCER RECURRENT
     Dosage: 1.7 MG, CYCLIC (CYCLE 1)
     Route: 042
     Dates: start: 20180323, end: 20180323
  8. DOXORUBICIN HCL [Suspect]
     Active Substance: DOXORUBICIN HYDROCHLORIDE
     Indication: OVARIAN CANCER RECURRENT
     Dosage: 46 MG, CYCLIC (CYCLE 1)
     Route: 042
     Dates: start: 20180323, end: 20180323
  9. DOXORUBICIN HCL [Suspect]
     Active Substance: DOXORUBICIN HYDROCHLORIDE
     Dosage: 30 MG, CYCLIC(CYCLE 3 TO 5)
     Route: 042
     Dates: start: 20180521, end: 20180716

REACTIONS (7)
  - Mood altered [Recovered/Resolved]
  - Asthenia [Recovered/Resolved]
  - Neutropenia [Recovered/Resolved]
  - Asthenia [Recovered/Resolved]
  - Decreased appetite [Recovered/Resolved]
  - Neutropenia [Recovered/Resolved]
  - Neutropenia [Recovered/Resolved]

NARRATIVE: CASE EVENT DATE: 20180416
